FAERS Safety Report 14167362 (Version 1)
Quarter: 2017Q4

REPORT INFORMATION
  Report Type: Spontaneous
  Country: US (occurrence: US)
  Receive Date: 20171107
  Receipt Date: 20171107
  Transmission Date: 20180321
  Serious: Yes (Other)
  Sender: FDA-Public Use
  Company Number: US-OMEROS CORPORATION-2017OME00011

PATIENT
  Age: 84 Year
  Sex: Male
  Weight: 77.98 kg

DRUGS (17)
  1. DIGOXIN. [Concomitant]
     Active Substance: DIGOXIN
  2. METFORMIN [Concomitant]
     Active Substance: METFORMIN HYDROCHLORIDE
  3. SIMVASTATIN. [Concomitant]
     Active Substance: SIMVASTATIN
  4. BALANCED SALT SOLUTION PLUS [Concomitant]
  5. TROPICAMIDE. [Concomitant]
     Active Substance: TROPICAMIDE
  6. ASPIRIN. [Concomitant]
     Active Substance: ASPIRIN
  7. CARVEDILOL. [Concomitant]
     Active Substance: CARVEDILOL
  8. RANITIDINE. [Concomitant]
     Active Substance: RANITIDINE
  9. NEOSYNEPHRINE [Concomitant]
     Active Substance: PHENYLEPHRINE HYDROCHLORIDE
  10. VITAMIN B12 [Concomitant]
     Active Substance: CYANOCOBALAMIN
  11. CILOXAN [Concomitant]
     Active Substance: CIPROFLOXACIN HYDROCHLORIDE
  12. PRED FORTE [Concomitant]
     Active Substance: PREDNISOLONE ACETATE
  13. OMIDRIA [Suspect]
     Active Substance: KETOROLAC\PHENYLEPHRINE
     Indication: INTRAOCULAR LENS IMPLANT
  14. OMIDRIA [Suspect]
     Active Substance: KETOROLAC\PHENYLEPHRINE
     Indication: CATARACT OPERATION
     Dosage: UNK, ONCE IN THE LEFT EYE
     Dates: start: 20170810, end: 20170810
  15. GABAPENTIN. [Concomitant]
     Active Substance: GABAPENTIN
  16. GLYBURIDE. [Concomitant]
     Active Substance: GLYBURIDE
  17. VISCOELASTIC [Concomitant]

REACTIONS (6)
  - Iritis [Recovering/Resolving]
  - Vitreous haze [Recovering/Resolving]
  - Hypopyon [Recovering/Resolving]
  - Endophthalmitis [Recovering/Resolving]
  - Anterior chamber fibrin [Recovering/Resolving]
  - Eye complication associated with device [Recovering/Resolving]

NARRATIVE: CASE EVENT DATE: 20170811
